FAERS Safety Report 12840017 (Version 3)
Quarter: 2017Q1

REPORT INFORMATION
  Report Type: Spontaneous
  Country: US (occurrence: US)
  Receive Date: 20161012
  Receipt Date: 20170119
  Transmission Date: 20170428
  Serious: Yes (Hospitalization)
  Sender: FDA-Public Use
  Company Number: US-PFIZER INC-2016473615

PATIENT
  Age: 4 Year
  Sex: Male
  Weight: 20 kg

DRUGS (4)
  1. SINGULAIR [Concomitant]
     Active Substance: MONTELUKAST SODIUM
     Indication: HYPERSENSITIVITY
     Dosage: 5 MG, 1X/DAY
  2. ZYRTEC [Concomitant]
     Active Substance: CETIRIZINE HYDROCHLORIDE
     Indication: HYPERSENSITIVITY
     Dosage: 5 MG, 1X/DAY
  3. FLONASE [Concomitant]
     Active Substance: FLUTICASONE PROPIONATE
     Indication: HYPERSENSITIVITY
     Dosage: 50 UG, 1 SPRAY IN EACH NOSTRIL DAILY
     Route: 045
  4. QUILLIVANT XR [Suspect]
     Active Substance: METHYLPHENIDATE HYDROCHLORIDE
     Indication: ATTENTION DEFICIT/HYPERACTIVITY DISORDER
     Dosage: 20 MG, SINGLE
     Route: 048
     Dates: start: 20161006, end: 20161006

REACTIONS (11)
  - Agitation [Recovered/Resolved]
  - Neck pain [Unknown]
  - Pressure of speech [Unknown]
  - Rash [Unknown]
  - Dystonia [Recovered/Resolved]
  - Hallucination [Recovered/Resolved]
  - Condition aggravated [Unknown]
  - Product use issue [Unknown]
  - Tic [Recovered/Resolved]
  - Psychomotor hyperactivity [Unknown]
  - Dyskinesia [Unknown]

NARRATIVE: CASE EVENT DATE: 20161006
